FAERS Safety Report 6576723-5 (Version None)
Quarter: 2010Q1

REPORT INFORMATION
  Report Type: 
  Country: None (occurrence: None)
  Receive Date: 20100210
  Receipt Date: 20100208
  Transmission Date: 20100710
  Serious: Yes (Other)
  Sender: FDA-Public Use
  Company Number: GB-ROCHE-682653

PATIENT
  Age: 68 Year
  Sex: Male

DRUGS (6)
  1. TAMIFLU [Suspect]
     Indication: H1N1 INFLUENZA
     Route: 065
     Dates: start: 20091201, end: 20100106
  2. SOTALOL [Concomitant]
     Dosage: REOPRTED AS SOTOLOL
  3. ALLOPURINOL [Concomitant]
  4. CLEXANE [Concomitant]
     Dosage: REPORTED AS CLAXANE
  5. SENNA [Concomitant]
  6. LACTULOSE [Concomitant]

REACTIONS (2)
  - ALTERED STATE OF CONSCIOUSNESS [None]
  - DELIRIUM [None]
